FAERS Safety Report 9344019 (Version 1)
Quarter: 2013Q2

REPORT INFORMATION
  Report Type: Spontaneous
  Country: US (occurrence: US)
  Receive Date: 20130612
  Receipt Date: 20130612
  Transmission Date: 20140414
  Serious: Yes (Other)
  Sender: FDA-Public Use
  Company Number: US-PFIZER INC-2013172616

PATIENT
  Age: 81 Year
  Sex: Female
  Weight: 50 kg

DRUGS (3)
  1. PREMARIN [Suspect]
     Indication: MUSCLE SPASMS
     Dosage: 0.625 MG, 1X/DAY, EXCEPT FIRST 7 DAYS OF EVERY MONTH
     Dates: start: 1987
  2. PREMARIN [Suspect]
     Dosage: UNK
  3. PREMARIN [Suspect]
     Dosage: 0.625 MG, 1X/DAY, EXCEPT FIRST 7 DAYS OF EVERY MONTH

REACTIONS (3)
  - Eye disorder [Not Recovered/Not Resolved]
  - Visual acuity reduced [Unknown]
  - Memory impairment [Unknown]
